FAERS Safety Report 7431974-2 (Version None)
Quarter: 2011Q1

REPORT INFORMATION
  Report Type: 
  Country: None (occurrence: None)
  Receive Date: 20110302
  Receipt Date: 20101024
  Transmission Date: 20110831
  Serious: No
  Sender: FDA-Public Use
  Company Number: 020924

PATIENT
  Sex: Female
  Weight: 56.7 kg

DRUGS (3)
  1. ABILIFY [Concomitant]
  2. LITHIUM [Concomitant]
  3. CIMZIA [Suspect]
     Indication: CROHN'S DISEASE
     Dosage: 400 MG 1X/28 DAYS SUBCUTANEOUS
     Route: 058
     Dates: start: 20090605

REACTIONS (3)
  - RASH [None]
  - NODULE [None]
  - ERYTHEMA [None]
